FAERS Safety Report 25417673 (Version 1)
Quarter: 2025Q2

REPORT INFORMATION
  Report Type: Spontaneous
  Country: DE (occurrence: DE)
  Receive Date: 20250610
  Receipt Date: 20250610
  Transmission Date: 20250716
  Serious: Yes (Hospitalization, Other)
  Sender: CELLTRION
  Company Number: DE-CELLTRION INC.-2025DE017832

PATIENT

DRUGS (3)
  1. YUFLYMA [Suspect]
     Active Substance: ADALIMUMAB-AATY
     Indication: Axial spondyloarthritis
     Dosage: 40 MG, 2X/WEEK
     Route: 065
     Dates: start: 20231219
  2. ETORICOXIB [Concomitant]
     Active Substance: ETORICOXIB
     Dates: start: 20170424, end: 20250201
  3. COSENTYX [Concomitant]
     Active Substance: SECUKINUMAB
     Dates: start: 20180126, end: 20190115

REACTIONS (3)
  - Cervical vertebral fracture [Recovered/Resolved]
  - Road traffic accident [Recovered/Resolved]
  - Intentional product use issue [Unknown]

NARRATIVE: CASE EVENT DATE: 20240519
